FAERS Safety Report 8846151 (Version 2)
Quarter: 2012Q4

REPORT INFORMATION
  Report Type: 
  Country: BR (occurrence: BR)
  Receive Date: 20121017
  Receipt Date: 20121109
  Transmission Date: 20130627
  Serious: Yes (Death, Hospitalization)
  Sender: FDA-Public Use
  Company Number: BR-ACTELION-A-CH2012-72810

PATIENT
  Age: 23 Month
  Sex: Female

DRUGS (2)
  1. ZAVESCA [Suspect]
     Indication: LIPIDOSIS
     Dosage: 50 mg, tid
     Route: 048
  2. LIPID EMULSION [Suspect]

REACTIONS (13)
  - Incorrect drug administration rate [Fatal]
  - Procedural complication [Fatal]
  - Parenteral nutrition [Fatal]
  - Pneumonia [Recovering/Resolving]
  - Influenza [Recovering/Resolving]
  - Mechanical ventilation [Recovering/Resolving]
  - Malabsorption [Unknown]
  - Abdominal distension [Unknown]
  - Lung disorder [Fatal]
  - Renal disorder [Fatal]
  - Liver disorder [Fatal]
  - Lipids increased [Fatal]
  - Hyperproteinaemia [Fatal]
